FAERS Safety Report 16380335 (Version 1)
Quarter: 2019Q2

REPORT INFORMATION
  Report Type: Other
  Country: CA (occurrence: CA)
  Receive Date: 20190601
  Receipt Date: 20190601
  Transmission Date: 20190711
  Serious: Yes (Other)
  Sender: FDA-Public Use
  Company Number: CA-APOTEX-2019AP014844

PATIENT
  Age: 66 Year
  Sex: Male

DRUGS (6)
  1. SALBUTAMOL [Suspect]
     Active Substance: ALBUTEROL
     Indication: ASTHMA
     Route: 065
  2. SALBUTAMOL/IPRATROPIUM [Suspect]
     Active Substance: ALBUTEROL\IPRATROPIUM
     Indication: PRODUCT USED FOR UNKNOWN INDICATION
     Dosage: UNK
     Route: 065
  3. OMALIZUMAB. [Suspect]
     Active Substance: OMALIZUMAB
     Indication: PRODUCT USED FOR UNKNOWN INDICATION
     Dosage: UNK
     Route: 042
  4. NUCALA [Suspect]
     Active Substance: MEPOLIZUMAB
     Indication: ASTHMA
     Dosage: 100 MG, UNK
     Route: 042
  5. SYMBICORT [Suspect]
     Active Substance: BUDESONIDE\FORMOTEROL FUMARATE DIHYDRATE
     Indication: PRODUCT USED FOR UNKNOWN INDICATION
     Dosage: UNK
     Route: 065
  6. PULMICORT TURBUHALER [Concomitant]
     Active Substance: BUDESONIDE
     Indication: PRODUCT USED FOR UNKNOWN INDICATION
     Dosage: UNK
     Route: 065

REACTIONS (14)
  - Condition aggravated [Recovering/Resolving]
  - Pruritus [Recovering/Resolving]
  - Asthma [Recovering/Resolving]
  - Sleep disorder [Recovering/Resolving]
  - Dyspnoea [Recovering/Resolving]
  - Wheezing [Recovering/Resolving]
  - Loss of personal independence in daily activities [Recovering/Resolving]
  - Lung infection [Recovering/Resolving]
  - Pyrexia [Recovering/Resolving]
  - Musculoskeletal chest pain [Recovering/Resolving]
  - Vascular stent stenosis [Recovering/Resolving]
  - Sputum discoloured [Recovering/Resolving]
  - Tuberculosis [Recovering/Resolving]
  - Anxiety [Recovering/Resolving]
